FAERS Safety Report 9247905 (Version 2)
Quarter: 2013Q2

REPORT INFORMATION
  Report Type: Spontaneous
  Country: US (occurrence: US)
  Receive Date: 20130423
  Receipt Date: 20130423
  Transmission Date: 20140414
  Serious: No
  Sender: FDA-Public Use
  Company Number: US-MYLANLABS-2012S1011318

PATIENT
  Age: 47 Year
  Sex: Female

DRUGS (1)
  1. DUONEB INHALATION SOLUTION [Suspect]
     Indication: ASTHMA
     Dosage: 0.5MG/3.0MG
     Route: 055

REACTIONS (2)
  - Drug effect decreased [Not Recovered/Not Resolved]
  - Dyspnoea [Not Recovered/Not Resolved]
